FAERS Safety Report 11766198 (Version 3)
Quarter: 2016Q1

REPORT INFORMATION
  Report Type: Spontaneous
  Country: US (occurrence: US)
  Receive Date: 20151122
  Receipt Date: 20160208
  Transmission Date: 20160525
  Serious: Yes (Other)
  Sender: FDA-Public Use
  Company Number: US-ABBOTT MEDICAL OPTICS-1044529

PATIENT
  Age: 57 Year
  Sex: Male

DRUGS (1)
  1. BLINK TEARS [Suspect]
     Active Substance: POLYETHYLENE GLYCOL 400
     Indication: DRY EYE
     Route: 047

REACTIONS (10)
  - Photophobia [Unknown]
  - Instillation site foreign body sensation [None]
  - Visual acuity reduced [None]
  - Drug effect decreased [None]
  - Vision blurred [None]
  - Product contamination physical [None]
  - Wrong technique in product usage process [None]
  - Headache [None]
  - Eye disorder [None]
  - Retinal injury [None]

NARRATIVE: CASE EVENT DATE: 2015
